FAERS Safety Report 23220648 (Version 2)
Quarter: 2023Q4

REPORT INFORMATION
  Report Type: Spontaneous
  Country: CN (occurrence: CN)
  Receive Date: 20231123
  Receipt Date: 20231205
  Transmission Date: 20240110
  Serious: Yes (Hospitalization)
  Sender: FDA-Public Use
  Company Number: CN-002147023-NVSC2023CN246921

PATIENT
  Age: 62 Year
  Sex: Female
  Weight: 62 kg

DRUGS (2)
  1. ZOLEDRONIC ACID [Suspect]
     Active Substance: ZOLEDRONIC ACID
     Indication: Osteoporosis
     Dosage: 5 MG, QD ROUTE OF ADMIN (FREE TEXT): INTRAVENOUS DRIP
     Route: 041
     Dates: start: 20231026, end: 20231026
  2. SODIUM CHLORIDE [Concomitant]
     Active Substance: SODIUM CHLORIDE
     Indication: Vehicle solution use
     Dosage: 250 ML, QD ROUTE OF ADMIN (FREE TEXT): INTRAVENOUS DRIP
     Route: 041
     Dates: start: 20231026, end: 20231026

REACTIONS (6)
  - Temperature intolerance [Recovered/Resolved]
  - Pyrexia [Recovered/Resolved]
  - Vomiting [Recovered/Resolved]
  - Nausea [Recovered/Resolved]
  - Gastrointestinal disorder [Recovering/Resolving]
  - Chills [Unknown]

NARRATIVE: CASE EVENT DATE: 20231026
